FAERS Safety Report 5344059-6 (Version None)
Quarter: 2007Q2

REPORT INFORMATION
  Report Type: 
  Country: None (occurrence: None)
  Receive Date: 20070604
  Receipt Date: 20070530
  Transmission Date: 20071010
  Serious: Yes (Hospitalization)
  Sender: FDA-Public Use
  Company Number: A0653788A

PATIENT
  Sex: Male

DRUGS (6)
  1. COREG CR [Suspect]
     Dosage: 80MG PER DAY
     Route: 048
     Dates: start: 20070522
  2. COREG [Suspect]
     Indication: ATRIAL FIBRILLATION
     Dosage: 3.125MG TWICE PER DAY
     Route: 048
     Dates: start: 20020101, end: 20070501
  3. SPIRONOLACTONE [Concomitant]
  4. LASIX [Concomitant]
  5. AVAPRO [Concomitant]
  6. COUMADIN [Concomitant]

REACTIONS (3)
  - CARDIAC PACEMAKER INSERTION [None]
  - DYSGEUSIA [None]
  - EYE IRRITATION [None]
